FAERS Safety Report 9925267 (Version 3)
Quarter: 2015Q1

REPORT INFORMATION
  Report Type: Spontaneous
  Country: US (occurrence: US)
  Receive Date: 20140226
  Receipt Date: 20150217
  Transmission Date: 20150721
  Serious: Yes (Hospitalization)
  Sender: FDA-Public Use
  Company Number: US-BRACCO-010387

PATIENT
  Age: 73 Year
  Sex: Male
  Weight: 97 kg

DRUGS (17)
  1. SODIUM CHLORIDE. [Concomitant]
     Active Substance: SODIUM CHLORIDE
  2. ALBUTEROL. [Concomitant]
     Active Substance: ALBUTEROL
  3. VANCOMYCIN [Concomitant]
     Active Substance: VANCOMYCIN
  4. METHYLPREDNISOLONE. [Concomitant]
     Active Substance: METHYLPREDNISOLONE
  5. GLYBURIDE. [Concomitant]
     Active Substance: GLYBURIDE
  6. PIPERACILLIN [Concomitant]
     Active Substance: PIPERACILLIN
  7. LEVALBUTEROL [Concomitant]
     Active Substance: LEVALBUTEROL
  8. NITROGLYCERINE [Concomitant]
     Active Substance: NITROGLYCERIN
  9. AMITRIPTYLINE [Concomitant]
     Active Substance: AMITRIPTYLINE
  10. ISOVUE 370 [Suspect]
     Active Substance: IOPAMIDOL
     Indication: ANGIOGRAM
     Route: 042
     Dates: start: 20131223, end: 20131223
  11. ROSUVASTATIN [Concomitant]
     Active Substance: ROSUVASTATIN
  12. ASPIRIN. [Concomitant]
     Active Substance: ASPIRIN
  13. DOPAMINE [Concomitant]
     Active Substance: DOPAMINE\DOPAMINE HYDROCHLORIDE
  14. AMLODIPINE [Concomitant]
     Active Substance: AMLODIPINE BESYLATE
  15. NICOTINE. [Concomitant]
     Active Substance: NICOTINE
  16. INSULIN [Concomitant]
     Active Substance: INSULIN NOS
  17. CARVEDILOL. [Concomitant]
     Active Substance: CARVEDILOL

REACTIONS (2)
  - Dyspnoea [Recovering/Resolving]
  - Cardio-respiratory arrest [Recovered/Resolved]

NARRATIVE: CASE EVENT DATE: 20131223
